FAERS Safety Report 6295200-2 (Version None)
Quarter: 2009Q3

REPORT INFORMATION
  Report Type: 
  Country: None (occurrence: None)
  Receive Date: 20090803
  Receipt Date: 20090727
  Transmission Date: 20100115
  Serious: Yes (Other)
  Sender: FDA-Public Use
  Company Number: BR-ASTRAZENECA-2009UW21389

PATIENT
  Age: 82 Year
  Sex: Female

DRUGS (3)
  1. SEROQUEL XR [Suspect]
     Indication: DEPRESSION
     Route: 048
     Dates: start: 20090429, end: 20090527
  2. SEROQUEL XR [Suspect]
     Route: 048
     Dates: start: 20090601
  3. ATENOLOL [Concomitant]
     Indication: HYPERTENSION
     Route: 048

REACTIONS (4)
  - ARRHYTHMIA [None]
  - DEPRESSION [None]
  - DIZZINESS [None]
  - SEDATION [None]
